FAERS Safety Report 18349418 (Version 1)
Quarter: 2020Q4

REPORT INFORMATION
  Report Type: Spontaneous
  Country: US (occurrence: US)
  Receive Date: 20201006
  Receipt Date: 20201006
  Transmission Date: 20210114
  Serious: Yes (Other)
  Sender: FDA-Public Use
  Company Number: US-TEVA-2020-US-1834889

PATIENT
  Sex: Female

DRUGS (16)
  1. MORPHINE EXTENDED-RELEASE TABLETS [Suspect]
     Active Substance: MORPHINE SULFATE
     Dosage: FORM OF ADMIN: EXTENDED RELEASE TABLETS
     Route: 065
  2. BUTRANS [Suspect]
     Active Substance: BUPRENORPHINE
     Route: 065
  3. HYDROMORPHONE IMMEDIATE-RELEASE TABLETS [Suspect]
     Active Substance: HYDROMORPHONE
     Route: 065
  4. OXYCODONE AND ACETAMINOPHEN [Suspect]
     Active Substance: ACETAMINOPHEN\OXYCODONE HYDROCHLORIDE
     Route: 065
  5. OXYCODONE IMMEDIATE-RELEASE TABLETS [Suspect]
     Active Substance: OXYCODONE HYDROCHLORIDE
     Dosage: FORM OF ADMIN: IMMEDIATE-RELEASE TABLETS
     Route: 065
  6. TRAMADOL. [Suspect]
     Active Substance: TRAMADOL
     Route: 065
  7. OXYIR [Suspect]
     Active Substance: OXYCODONE HYDROCHLORIDE
     Route: 065
  8. RYZOLT [Suspect]
     Active Substance: TRAMADOL HYDROCHLORIDE
     Route: 065
  9. FENTANYL. [Suspect]
     Active Substance: FENTANYL
     Indication: PRODUCT USED FOR UNKNOWN INDICATION
     Route: 065
  10. OXYCODONE EXTENDED-RELEASE TABLETS [Suspect]
     Active Substance: OXYCODONE
     Route: 065
  11. HYDROCODONE [Suspect]
     Active Substance: HYDROCODONE
     Route: 065
  12. DILAUDID [Suspect]
     Active Substance: HYDROMORPHONE HYDROCHLORIDE
     Route: 065
  13. MS CONTIN [Suspect]
     Active Substance: MORPHINE SULFATE
     Route: 065
  14. BUPRENORPHINE TRANSDERMAL [Suspect]
     Active Substance: BUPRENORPHINE
     Route: 062
  15. OXYCONTIN [Suspect]
     Active Substance: OXYCODONE HYDROCHLORIDE
     Route: 065
  16. METHADONE [Suspect]
     Active Substance: METHADONE HYDROCHLORIDE
     Route: 065

REACTIONS (2)
  - Dependence [Unknown]
  - Substance use disorder [Unknown]
